FAERS Safety Report 6600755-1 (Version None)
Quarter: 2010Q1

REPORT INFORMATION
  Report Type: 
  Country: None (occurrence: None)
  Receive Date: 20100225
  Receipt Date: 20100218
  Transmission Date: 20100710
  Serious: Yes (Hospitalization)
  Sender: FDA-Public Use
  Company Number: IT-ABBOTT-09P-083-0599379-00

PATIENT
  Sex: Male

DRUGS (2)
  1. HUMIRA [Suspect]
     Indication: PSORIASIS
     Dosage: CYCLIC ADMINISTRATION
     Dates: start: 20090201, end: 20090909
  2. RAPTIVA [Suspect]
     Indication: PSORIASIS
     Dates: start: 20060125, end: 20090727

REACTIONS (2)
  - LYMPHADENOPATHY [None]
  - PYREXIA [None]
